FAERS Safety Report 12863703 (Version 1)
Quarter: 2016Q4

REPORT INFORMATION
  Report Type: Spontaneous
  Country: US (occurrence: US)
  Receive Date: 20161019
  Receipt Date: 20161019
  Transmission Date: 20170207
  Serious: Yes (Hospitalization)
  Sender: FDA-Public Use
  Company Number: US-RELYPSA-RLY2016003031

PATIENT
  Sex: Male

DRUGS (14)
  1. NIFEDIPINE. [Concomitant]
     Active Substance: NIFEDIPINE
  2. VELTASSA [Suspect]
     Active Substance: PATIROMER
     Indication: HYPERKALAEMIA
     Dosage: 8.4 G, QD
     Route: 048
  3. ISOSORBIDE DINITRATE. [Concomitant]
     Active Substance: ISOSORBIDE DINITRATE
  4. LIPITOR [Concomitant]
     Active Substance: ATORVASTATIN CALCIUM
  5. FINASTERIDE. [Concomitant]
     Active Substance: FINASTERIDE
  6. TRADJENTA [Concomitant]
     Active Substance: LINAGLIPTIN
  7. HYDROCODONE/ACETAMINOPHEN [Concomitant]
     Active Substance: ACETAMINOPHEN\HYDROCODONE
  8. CARVEDILOL. [Concomitant]
     Active Substance: CARVEDILOL
  9. COLCRYS [Concomitant]
     Active Substance: COLCHICINE
  10. GABAPENTIN. [Concomitant]
     Active Substance: GABAPENTIN
  11. DIOVAN HCT [Concomitant]
     Active Substance: HYDROCHLOROTHIAZIDE\VALSARTAN
  12. LEVEMIR [Concomitant]
     Active Substance: INSULIN DETEMIR
  13. TAMSULOSIN HCL [Concomitant]
     Active Substance: TAMSULOSIN
  14. VITAMIN D3 [Concomitant]
     Active Substance: CHOLECALCIFEROL

REACTIONS (1)
  - Blood pressure abnormal [Not Recovered/Not Resolved]
